FAERS Safety Report 16987253 (Version 4)
Quarter: 2020Q4

REPORT INFORMATION
  Report Type: Report from Study
  Country: DE (occurrence: DE)
  Receive Date: 20191104
  Receipt Date: 20201221
  Transmission Date: 20210113
  Serious: Yes (Death, Hospitalization, Disabling, Other)
  Sender: FDA-Public Use
  Company Number: DE-AUROBINDO-AUR-APL-2019-070539

PATIENT
  Sex: Female

DRUGS (17)
  1. MABTHERA [Suspect]
     Active Substance: RITUXIMAB
     Indication: B-CELL LYMPHOMA
     Dosage: 700 MILLIGRAM, ONCE A DAY (1X)
     Route: 042
     Dates: start: 20180409, end: 20180409
  2. FUROSEMIDE. [Concomitant]
     Active Substance: FUROSEMIDE
     Indication: PRODUCT USED FOR UNKNOWN INDICATION
     Dosage: 40 MILLIGRAM, TWO TIMES A DAY ( (1/4-1/4-0)
     Route: 048
  3. FENTANYL. [Concomitant]
     Active Substance: FENTANYL
     Indication: ANALGESIC THERAPY
     Dosage: 50 MILLIGRAM 23 DAY
     Route: 062
  4. NEBIVOLOL. [Concomitant]
     Active Substance: NEBIVOLOL
     Indication: HYPERTENSION
     Dosage: 5 MILLIGRAM (1/2-0-1/2)
     Route: 048
  5. PANTOZOLE [Concomitant]
     Active Substance: PANTOPRAZOLE SODIUM
     Indication: PROPHYLAXIS AGAINST GASTROINTESTINAL ULCER
     Dosage: 40 MILLIGRAM, ONCE A DAY
     Route: 048
  6. MIRTAZAPIN [Concomitant]
     Active Substance: MIRTAZAPINE
     Indication: INSOMNIA
     Dosage: 15 MILLIGRAM (0-0-0-1/2)
     Route: 048
  7. ARLEVERT [Concomitant]
     Active Substance: CINNARIZINE\DIMENHYDRINATE
     Indication: VERTIGO
     Dosage: 20/40 MG/MG (1-0-0)
     Route: 048
  8. DECORTIN [Suspect]
     Active Substance: PREDNISONE
     Indication: B-CELL LYMPHOMA
     Dosage: 100 MILLIGRAM 5X FOR 5 DAYS
     Route: 065
     Dates: start: 20180312, end: 20180316
  9. KALINOR [Concomitant]
     Indication: PRODUCT SUBSTITUTION
     Dosage: 8 MILLIMOLE, ONCE A DAY ((1-0-0))
     Route: 048
  10. CLEXANE [Concomitant]
     Active Substance: ENOXAPARIN SODIUM
     Indication: PROPHYLAXIS
     Dosage: 6000 INTERNATIONAL UNIT, ONCE A DAY (1-0-1)
     Route: 058
  11. ADRIAMYCIN [Suspect]
     Active Substance: DOXORUBICIN HYDROCHLORIDE
     Indication: B-CELL LYMPHOMA
     Dosage: 70 MILLIGRAM 1X
     Route: 042
     Dates: start: 20180312, end: 20180312
  12. SEVREDOL [Concomitant]
     Active Substance: MORPHINE
     Indication: ANALGESIC THERAPY
     Dosage: 20 MILLIGRAM, PRN (MAX 6XDAILY)
     Route: 048
  13. MARQIBO [Suspect]
     Active Substance: VINCRISTINE SULFATE
     Indication: B-CELL LYMPHOMA
     Dosage: 3.21 MILLIGRAM 1X
     Route: 042
     Dates: start: 20180119, end: 20180119
  14. ENDOXAN [Suspect]
     Active Substance: CYCLOPHOSPHAMIDE
     Indication: B-CELL LYMPHOMA
     Dosage: 1050 MILLIGRAM, ONCE A DAY (1X)
     Route: 042
     Dates: start: 20180312, end: 20180312
  15. NEULASTA [Suspect]
     Active Substance: PEGFILGRASTIM
     Indication: B-CELL LYMPHOMA
     Dosage: 6 MILLIGRAM 1X
     Route: 058
     Dates: start: 20180315, end: 20180315
  16. BROMAZEPAM [Concomitant]
     Active Substance: BROMAZEPAM
     Indication: INSOMNIA
     Dosage: 6 MILLIGRAM (0-0-0-1/2)
     Route: 048
  17. DEKRISTOL [Concomitant]
     Active Substance: CHOLECALCIFEROL
     Indication: HYPOCALCAEMIA
     Dosage: 20000 INTERNATIONAL UNIT, EVERY WEEK
     Route: 048

REACTIONS (2)
  - Death [Fatal]
  - Decubitus ulcer [Unknown]

NARRATIVE: CASE EVENT DATE: 20180723
